FAERS Safety Report 5675132-0 (Version None)
Quarter: 2008Q1

REPORT INFORMATION
  Report Type: 
  Country: None (occurrence: None)
  Receive Date: 20080320
  Receipt Date: 20080310
  Transmission Date: 20080703
  Serious: Yes (Other)
  Sender: FDA-Public Use
  Company Number: JP-ROCHE-548151

PATIENT
  Age: 12 Month
  Sex: Male
  Weight: 9 kg

DRUGS (3)
  1. TAMIFLU [Suspect]
     Route: 048
     Dates: start: 20080202, end: 20080202
  2. TAMIFLU [Suspect]
     Route: 048
     Dates: start: 20080203, end: 20080205
  3. ALPINY [Concomitant]
     Dosage: FORM: RECTAL SUPPOSITORY.
     Route: 054

REACTIONS (1)
  - ABNORMAL BEHAVIOUR [None]
